FAERS Safety Report 9204490 (Version 1)
Quarter: 2013Q2

REPORT INFORMATION
  Report Type: Spontaneous
  Country: US (occurrence: US)
  Receive Date: 20130402
  Receipt Date: 20130402
  Transmission Date: 20140414
  Serious: Yes (Other)
  Sender: FDA-Public Use
  Company Number: US-BAYER-2013-036753

PATIENT
  Sex: Female

DRUGS (1)
  1. ALEVE [Suspect]
     Dosage: UNK

REACTIONS (8)
  - Myocardial infarction [None]
  - Ocular hyperaemia [None]
  - Pruritus [None]
  - Wheezing [None]
  - Chest pain [None]
  - Nausea [None]
  - Flushing [None]
  - Rash [None]
